FAERS Safety Report 9867918 (Version 2)
Quarter: 2014Q1

REPORT INFORMATION
  Report Type: Report from Study
  Country: DE (occurrence: DE)
  Receive Date: 20140204
  Receipt Date: 20140204
  Transmission Date: 20141002
  Serious: Yes (Hospitalization, Other)
  Sender: FDA-Public Use
  Company Number: DE-SANOFI-AVENTIS-2012SA009925

PATIENT
  Age: 30 Year
  Sex: Female
  Weight: 69 kg

DRUGS (5)
  1. TERIFLUNOMIDE [Suspect]
     Indication: MULTIPLE SCLEROSIS RELAPSE
     Route: 048
     Dates: start: 20120130, end: 20120212
  2. ALL OTHER THERAPEUTIC PRODUCTS [Concomitant]
     Dates: start: 20110629
  3. ERYTHRO [Concomitant]
     Dates: start: 20110629
  4. BELARA [Concomitant]
     Dosage: DOSE:1 UNIT(S)
     Route: 048
     Dates: start: 2003, end: 20111205
  5. DOXYCYCLINE [Concomitant]
     Indication: BORRELIA INFECTION
     Route: 065

REACTIONS (1)
  - Invasive ductal breast carcinoma [Not Recovered/Not Resolved]
